FAERS Safety Report 8592412-X (Version None)
Quarter: 2012Q3

REPORT INFORMATION
  Report Type: 
  Country: None (occurrence: None)
  Receive Date: 20120814
  Receipt Date: 20120805
  Transmission Date: 20120928
  Serious: Yes (Hospitalization, Other)
  Sender: FDA-Public Use
  Company Number: US-009507513-1207USA002072

PATIENT

DRUGS (11)
  1. REBETOL [Suspect]
     Indication: HEPATITIS C
     Dosage: 2 DF, BID
     Dates: start: 20120517, end: 20120701
  2. NIFEDIPINE [Concomitant]
  3. COREG [Concomitant]
  4. PEG-INTRON [Suspect]
     Indication: HEPATITIS C
     Dosage: UNK
     Dates: start: 20120517
  5. REBETOL [Suspect]
     Dosage: 1 DF, BID
     Dates: start: 20120701
  6. TEMAZEPAM [Concomitant]
  7. OXYCODONE [Concomitant]
  8. AMITRIPTYLINE HCL [Concomitant]
  9. FOSAMAX [Concomitant]
  10. LISINOPRIL [Concomitant]
  11. ASPIRIN [Concomitant]

REACTIONS (5)
  - DIZZINESS [None]
  - PLATELET COUNT DECREASED [None]
  - HYPOTENSION [None]
  - CONTUSION [None]
  - LOSS OF CONSCIOUSNESS [None]
